FAERS Safety Report 4338512-1 (Version None)
Quarter: 2004Q2

REPORT INFORMATION
  Report Type: 
  Country: None (occurrence: None)
  Receive Date: 20040414
  Receipt Date: 20040407
  Transmission Date: 20050107
  Serious: Yes (Hospitalization)
  Sender: FDA-Public Use
  Company Number: FR-GLAXOSMITHKLINE-B0329235A

PATIENT
  Age: 42 Year
  Sex: Female

DRUGS (1)
  1. MALARONE [Suspect]
     Indication: MALARIA PROPHYLAXIS
     Dosage: 1TAB PER DAY
     Route: 048
     Dates: start: 20031201, end: 20040202

REACTIONS (6)
  - AGITATION [None]
  - FLIGHT OF IDEAS [None]
  - INCOHERENT [None]
  - INSOMNIA [None]
  - LOGORRHOEA [None]
  - MANIA [None]
